FAERS Safety Report 10171196 (Version 1)
Quarter: 2014Q2

REPORT INFORMATION
  Report Type: Spontaneous
  Country: US (occurrence: None)
  Receive Date: 20140513
  Receipt Date: 20140513
  Transmission Date: 20141212
  Serious: No
  Sender: FDA-Public Use
  Company Number: None

PATIENT
  Age: 24 Year
  Sex: Female
  Weight: 79 kg

DRUGS (1)
  1. CEFEPIME [Suspect]
     Dosage: CEFEPIME 1GM  Q12 HOURS  IV
     Route: 042

REACTIONS (1)
  - Swelling face [None]
